FAERS Safety Report 6362188-5 (Version None)
Quarter: 2009Q3

REPORT INFORMATION
  Report Type: 
  Country: None (occurrence: None)
  Receive Date: 20090918
  Receipt Date: 20090907
  Transmission Date: 20100115
  Serious: Yes (Other)
  Sender: FDA-Public Use
  Company Number: FR-ELI_LILLY_AND_COMPANY-FR200909001371

PATIENT
  Age: 71 Year
  Sex: Female

DRUGS (3)
  1. FORTEO [Suspect]
     Dosage: UNK, UNKNOWN
     Route: 058
     Dates: start: 20090401
  2. VITAMIN D [Concomitant]
     Dosage: UNK, UNKNOWN
  3. CALCIUM [Concomitant]
     Dosage: UNK, UNKNOWN

REACTIONS (1)
  - LUMBAR VERTEBRAL FRACTURE [None]
